FAERS Safety Report 7318841-X (Version None)
Quarter: 2011Q1

REPORT INFORMATION
  Report Type: 
  Country: None (occurrence: None)
  Receive Date: 20110228
  Receipt Date: 20100923
  Transmission Date: 20110831
  Serious: No
  Sender: FDA-Public Use
  Company Number: A0882959A

PATIENT
  Sex: Female

DRUGS (9)
  1. STOOL SOFTENER [Concomitant]
  2. ZOMIG [Concomitant]
  3. MULTI-VITAMIN [Concomitant]
  4. INDERAL [Concomitant]
  5. ASPIRIN [Concomitant]
  6. IMITREX [Suspect]
     Indication: MIGRAINE
     Dosage: 1INJ AS REQUIRED
     Route: 058
  7. ACIPHEX [Concomitant]
  8. LASIX [Concomitant]
  9. VESICARE [Concomitant]

REACTIONS (1)
  - INJECTION SITE ERYTHEMA [None]
